FAERS Safety Report 9355169 (Version 1)
Quarter: 2013Q2

REPORT INFORMATION
  Report Type: Spontaneous
  Country: US (occurrence: US)
  Receive Date: 20130619
  Receipt Date: 20130619
  Transmission Date: 20140414
  Serious: Yes (Other)
  Sender: FDA-Public Use
  Company Number: PHHY2013US061584

PATIENT
  Age: 53 Year
  Sex: Female

DRUGS (11)
  1. OXCARBAZEPINE [Suspect]
     Indication: GRAND MAL CONVULSION
  2. OXCARBAZEPINE [Suspect]
     Dosage: 1200 MG, DAILY IN TWO DIVIDED DOSES
  3. OXCARBAZEPINE [Suspect]
     Dosage: 900 MG, DAILY
  4. PREGABALIN [Suspect]
     Indication: GRAND MAL CONVULSION
  5. PREGABALIN [Suspect]
     Dosage: 150 MG, PER DAY IN THREE DIVIDED DOSES
  6. PREGABALIN [Suspect]
     Dosage: 300 MG, DAILY IN THREE DIVIDED DOSES
  7. LAMOTRIGINE [Concomitant]
     Dosage: UNK UKN, UNK
  8. LAMOTRIGINE [Concomitant]
     Dosage: 700 MG, IN THREE DIVIDED DOSES DAILY
  9. LAMOTRIGINE [Concomitant]
     Dosage: 600 MG, UNK
  10. LACOSAMIDE [Concomitant]
     Dosage: UNK UKN, UNK
  11. LACOSAMIDE [Concomitant]
     Dosage: 100 MG, BID

REACTIONS (25)
  - Toxicity to various agents [Unknown]
  - Head injury [Unknown]
  - Subdural haematoma [Unknown]
  - Brain contusion [Unknown]
  - Ataxia [Recovering/Resolving]
  - Balance disorder [Recovering/Resolving]
  - Nausea [Unknown]
  - Vomiting [Unknown]
  - Fall [Recovered/Resolved]
  - Complex partial seizures [Recovering/Resolving]
  - Atonic seizures [Recovering/Resolving]
  - Condition aggravated [Recovering/Resolving]
  - Hypotonia [Recovering/Resolving]
  - Grand mal convulsion [Recovering/Resolving]
  - Convulsion [Recovering/Resolving]
  - Staring [Recovering/Resolving]
  - Depressed level of consciousness [Recovering/Resolving]
  - Postictal state [Recovering/Resolving]
  - Faecal incontinence [Recovering/Resolving]
  - Cognitive disorder [Recovering/Resolving]
  - Speech disorder [Recovering/Resolving]
  - Aphasia [Recovering/Resolving]
  - Urinary incontinence [Recovering/Resolving]
  - Therapeutic response decreased [Recovering/Resolving]
  - Automatism [Recovering/Resolving]
